FAERS Safety Report 8767573 (Version 1)
Quarter: 2012Q4

REPORT INFORMATION
  Report Type: 
  Country: BR (occurrence: BR)
  Receive Date: 20120904
  Receipt Date: 20120904
  Transmission Date: 20130627
  Serious: Yes (Other)
  Sender: FDA-Public Use
  Company Number: PHHY2012BR076224

PATIENT
  Age: 68 Year
  Sex: Male

DRUGS (6)
  1. DIOVAN HCT [Suspect]
     Dosage: 1 DF (160/12.5 mg) Per day
  2. ATENOLOL [Concomitant]
     Dosage: 25 mg, Per day
  3. ATENOLOL [Concomitant]
     Dosage: 50 mg, UNK
  4. CRESTOR [Concomitant]
     Dosage: 10 mg, Per day
  5. AMARYL [Concomitant]
     Dosage: 6 mg, Per day
  6. METFORMIN [Concomitant]
     Dosage: 1 DF (500), Per day

REACTIONS (17)
  - Hypoglycaemia [Not Recovered/Not Resolved]
  - Presyncope [Not Recovered/Not Resolved]
  - Coronary artery stenosis [Not Recovered/Not Resolved]
  - Angina pectoris [Not Recovered/Not Resolved]
  - Syncope [Not Recovered/Not Resolved]
  - Malaise [Not Recovered/Not Resolved]
  - Hyperhidrosis [Not Recovered/Not Resolved]
  - Chest pain [Not Recovered/Not Resolved]
  - Body mass index increased [Not Recovered/Not Resolved]
  - Waist circumference increased [Not Recovered/Not Resolved]
  - Blood triglycerides increased [Not Recovered/Not Resolved]
  - Blood glucose increased [Not Recovered/Not Resolved]
  - Glycosylated haemoglobin increased [Not Recovered/Not Resolved]
  - Electrocardiogram ST segment depression [Not Recovered/Not Resolved]
  - Ventricular hypokinesia [Not Recovered/Not Resolved]
  - High density lipoprotein decreased [Not Recovered/Not Resolved]
  - Hypertension [Not Recovered/Not Resolved]
